FAERS Safety Report 9495488 (Version 2)
Quarter: 2013Q3

REPORT INFORMATION
  Report Type: Spontaneous
  Country: US (occurrence: US)
  Receive Date: 20130903
  Receipt Date: 20130903
  Transmission Date: 20140515
  Serious: No
  Sender: FDA-Public Use
  Company Number: US-BAXTER-2013BAX004728

PATIENT
  Age: 62 Year
  Sex: Male
  Weight: 75.82 kg

DRUGS (4)
  1. 20% PROSOL? -SULFITE-FREE (AMINO ACID) INJECTION [Suspect]
     Indication: PARENTERAL NUTRITION
     Route: 042
     Dates: start: 20111216, end: 20130131
  2. 70% DEXTROSE INJECTION USP [Suspect]
     Indication: PARENTERAL NUTRITION
     Route: 065
  3. STERILE WATER FOR INJECTION [Suspect]
     Indication: PARENTERAL NUTRITION
     Route: 065
  4. INTRALIPID [Suspect]
     Indication: PARENTERAL NUTRITION
     Route: 065

REACTIONS (3)
  - Hypersensitivity [Not Recovered/Not Resolved]
  - Nausea [Not Recovered/Not Resolved]
  - Vomiting [Not Recovered/Not Resolved]
